FAERS Safety Report 5714311-0 (Version None)
Quarter: 2008Q2

REPORT INFORMATION
  Report Type: 
  Country: None (occurrence: None)
  Receive Date: 20080422
  Receipt Date: 20080422
  Transmission Date: 20081010
  Serious: Yes (Hospitalization)
  Sender: FDA-Public Use
  Company Number: None

PATIENT
  Age: 63 Year
  Sex: Male

DRUGS (1)
  1. ADALIMUMAB [Suspect]
     Dosage: 40 MG QWEEK SQ
     Route: 058
     Dates: start: 20080201, end: 20080222

REACTIONS (2)
  - PNEUMONIA [None]
  - RESPIRATORY DEPRESSION [None]
